FAERS Safety Report 9602762 (Version 1)
Quarter: 2013Q4

REPORT INFORMATION
  Report Type: Spontaneous
  Country: US (occurrence: US)
  Receive Date: 20131007
  Receipt Date: 20131007
  Transmission Date: 20140711
  Serious: Yes (Hospitalization)
  Sender: FDA-Public Use
  Company Number: US-B.I. PHARMACEUTICALS,INC./RIDGEFIELD-2013-BI-31219BP

PATIENT
  Age: 65 Year
  Sex: Female

DRUGS (1)
  1. GILOTRIF [Suspect]
     Indication: LUNG NEOPLASM MALIGNANT
     Dosage: 30 MG
     Route: 048
     Dates: start: 20120401

REACTIONS (5)
  - Oxygen saturation decreased [Unknown]
  - Diarrhoea [Unknown]
  - Constipation [Unknown]
  - Dry skin [Unknown]
  - Pruritus [Unknown]
